FAERS Safety Report 9632639 (Version 2)
Quarter: 2014Q1

REPORT INFORMATION
  Report Type: Spontaneous
  Country: US (occurrence: US)
  Receive Date: 20131018
  Receipt Date: 20140130
  Transmission Date: 20141002
  Serious: Yes (Death, Disabling)
  Sender: FDA-Public Use
  Company Number: US-GLAXOSMITHKLINE-A1045967A

PATIENT
  Age: 79 Year
  Sex: Female
  Weight: 60.9 kg

DRUGS (6)
  1. VOTRIENT [Suspect]
     Indication: PRODUCT USED FOR UNKNOWN INDICATION
     Dosage: 800MG PER DAY
     Route: 065
     Dates: start: 20130927, end: 20130927
  2. AMLODIPINE [Concomitant]
  3. ATENOLOL [Concomitant]
  4. LOSARTAN [Concomitant]
  5. PRADAXA [Concomitant]
  6. PRAVASTATIN [Concomitant]

REACTIONS (4)
  - Death [Fatal]
  - Cerebrovascular accident [Unknown]
  - Paraesthesia oral [Unknown]
  - Speech disorder [Unknown]
